FAERS Safety Report 15676639 (Version 1)
Quarter: 2018Q4

REPORT INFORMATION
  Report Type: Report from Study
  Country: BR (occurrence: BR)
  Receive Date: 20181130
  Receipt Date: 20181130
  Transmission Date: 20190205
  Serious: Yes (Other)
  Sender: FDA-Public Use
  Company Number: BR-JNJFOC-20181134201

PATIENT
  Age: 54 Year
  Sex: Male

DRUGS (1)
  1. SIMPONI [Suspect]
     Active Substance: GOLIMUMAB
     Indication: RHEUMATOID ARTHRITIS
     Route: 058
     Dates: start: 20171016

REACTIONS (4)
  - Blood glucose increased [Unknown]
  - Lung hernia [Unknown]
  - Blood pressure diastolic decreased [Unknown]
  - Haematemesis [Unknown]

NARRATIVE: CASE EVENT DATE: 201811
